FAERS Safety Report 24750238 (Version 1)
Quarter: 2024Q4

REPORT INFORMATION
  Report Type: Spontaneous
  Country: US (occurrence: US)
  Receive Date: 20241218
  Receipt Date: 20241218
  Transmission Date: 20250114
  Serious: No
  Sender: SANOFI AVENTIS
  Company Number: US-SA-2024SA370962

PATIENT
  Sex: Female

DRUGS (1)
  1. DUPIXENT [Suspect]
     Active Substance: DUPILUMAB
     Indication: Dermatitis atopic
     Dosage: 300MG EVERY 14 DAYS
     Route: 058
     Dates: start: 202303

REACTIONS (2)
  - Dermatitis atopic [Recovered/Resolved]
  - Inappropriate schedule of product administration [Unknown]
